FAERS Safety Report 4309462-1 (Version None)
Quarter: 2004Q1

REPORT INFORMATION
  Report Type: 
  Country: None (occurrence: None)
  Receive Date: 20040301
  Receipt Date: 20040224
  Transmission Date: 20041129
  Serious: Yes (Death)
  Sender: FDA-Public Use
  Company Number: 200402416

PATIENT
  Age: 42 Year
  Sex: Male

DRUGS (7)
  1. MOTRIN [Suspect]
  2. METFORMIN HCL [Suspect]
     Indication: DIABETES MELLITUS NON-INSULIN-DEPENDENT
  3. TIAPROFENIC ACID [Suspect]
  4. INSULIN [Concomitant]
  5. CLARITHROMYCIN [Concomitant]
  6. DOMEPERIDONE [Concomitant]
  7. BUFLOMEDIL [Concomitant]

REACTIONS (31)
  - ABDOMINAL PAIN [None]
  - ACUTE RESPIRATORY DISTRESS SYNDROME [None]
  - ANURIA [None]
  - BLOOD CALCIUM INCREASED [None]
  - BLOOD CHLORIDE DECREASED [None]
  - BLOOD GLUCOSE INCREASED [None]
  - BLOOD PH DECREASED [None]
  - BLOOD PRESSURE DECREASED [None]
  - BODY TEMPERATURE DECREASED [None]
  - BRADYCARDIA [None]
  - CARDIAC INDEX DECREASED [None]
  - CONFUSIONAL STATE [None]
  - DEHYDRATION [None]
  - DEPRESSED LEVEL OF CONSCIOUSNESS [None]
  - GASTRIC ULCER [None]
  - GASTRITIS [None]
  - HAEMATOCRIT INCREASED [None]
  - HAEMODIALYSIS [None]
  - HAEMOGLOBIN INCREASED [None]
  - LACTIC ACIDOSIS [None]
  - OESOPHAGITIS [None]
  - OLIGURIA [None]
  - OVERDOSE [None]
  - PULMONARY ARTERIAL WEDGE PRESSURE DECREASED [None]
  - RENAL FAILURE ACUTE [None]
  - RESPIRATORY RATE INCREASED [None]
  - SHOCK [None]
  - SUICIDE ATTEMPT [None]
  - THERAPEUTIC AGENT TOXICITY [None]
  - URINE KETONE BODY PRESENT [None]
  - WHITE BLOOD CELL COUNT INCREASED [None]
